FAERS Safety Report 26174851 (Version 1)
Quarter: 2025Q4

REPORT INFORMATION
  Report Type: Report from Study
  Country: EU (occurrence: EU)
  Receive Date: 20251218
  Receipt Date: 20251218
  Transmission Date: 20260117
  Serious: Yes (Other)
  Sender: OCTAPHARMA
  Company Number: EU-OCTA-2025001160

PATIENT
  Age: 15 Year
  Sex: Female
  Weight: 80 kg

DRUGS (1)
  1. CUTAQUIG [Suspect]
     Active Substance: HUMAN IMMUNOGLOBULIN G
     Indication: Primary immunodeficiency syndrome
     Route: 058
     Dates: start: 20250218

REACTIONS (3)
  - Epilepsy [Recovering/Resolving]
  - Skin induration [Recovering/Resolving]
  - Product dose omission issue [Unknown]

NARRATIVE: CASE EVENT DATE: 20250218
